FAERS Safety Report 4595521-5 (Version None)
Quarter: 2005Q1

REPORT INFORMATION
  Report Type: 
  Country: None (occurrence: None)
  Receive Date: 20050228
  Receipt Date: 20050228
  Transmission Date: 20050727
  Serious: Yes (Other)
  Sender: FDA-Public Use
  Company Number: None

PATIENT
  Age: 78 Year
  Sex: Female
  Weight: 79 kg

DRUGS (9)
  1. CISPLATIN [Suspect]
     Indication: LUNG NEOPLASM MALIGNANT
     Dosage: 137MG IV
     Route: 042
     Dates: start: 20050105
  2. DOCETAXEL 75MG/M2 IV [Suspect]
     Indication: LUNG NEOPLASM MALIGNANT
     Dosage: 137MG IV
     Route: 042
     Dates: start: 20050105
  3. ASPIRIN [Concomitant]
  4. SIMVASTATIN [Concomitant]
  5. OXYBUTYNIN [Concomitant]
  6. TRIAMTERENE AND HYDROCHLOROTHIAZIDE [Concomitant]
  7. DOCUSATE [Concomitant]
  8. METOPROLOL [Concomitant]
  9. LISINOPRIL [Concomitant]

REACTIONS (2)
  - RASH PAPULAR [None]
  - RASH PRURITIC [None]
